FAERS Safety Report 15847136 (Version 1)
Quarter: 2019Q1

REPORT INFORMATION
  Report Type: Report from Study
  Country: ES (occurrence: ES)
  Receive Date: 20190121
  Receipt Date: 20190121
  Transmission Date: 20190417
  Serious: Yes (Hospitalization)
  Sender: FDA-Public Use
  Company Number: ES-TEVA-2019-ES-1001638

PATIENT
  Age: 10 Year
  Sex: Male

DRUGS (8)
  1. CICLOFOSFAMIDA (120A) [Suspect]
     Active Substance: CYCLOPHOSPHAMIDE
     Indication: PRECURSOR T-LYMPHOBLASTIC LYMPHOMA/LEUKAEMIA
     Dosage: 1199.5 MILLIGRAM DAILY;
     Route: 042
     Dates: start: 20180604, end: 20180604
  2. TIOGUANINA (744A) [Suspect]
     Active Substance: THIOGUANINE
     Indication: PRECURSOR T-LYMPHOBLASTIC LYMPHOMA/LEUKAEMIA
     Dosage: 70 MILLIGRAM DAILY;
     Route: 048
     Dates: start: 20180604, end: 20180610
  3. MESNA (1078A) [Concomitant]
     Active Substance: MESNA
     Indication: PROPHYLAXIS
     Dosage: 1440 MILLIGRAM DAILY;
     Route: 042
     Dates: start: 20180604, end: 20180604
  4. VINCRISTINA SULFATO (809SU) [Suspect]
     Active Substance: VINCRISTINE SULFATE
     Indication: PRECURSOR T-LYMPHOBLASTIC LYMPHOMA/LEUKAEMIA
     Dosage: 1.8 MILLIGRAM DAILY;
     Route: 042
     Dates: start: 20180528, end: 20180528
  5. CITARABINA (124A) [Suspect]
     Active Substance: CYTARABINE
     Indication: PRECURSOR T-LYMPHOBLASTIC LYMPHOMA/LEUKAEMIA
     Dosage: 90 MILLIGRAM DAILY;
     Route: 042
     Dates: start: 20180606, end: 20180609
  6. ZOVIRAX  400 MG/5 ML SUSPENSION ORAL , 1 FRASCO DE 200 ML [Concomitant]
     Indication: OPPORTUNISTIC INFECTION PROPHYLAXIS
     Route: 048
     Dates: start: 20171102
  7. DOXORUBICINA (202A) [Suspect]
     Active Substance: DOXORUBICIN HYDROCHLORIDE
     Indication: PRECURSOR T-LYMPHOBLASTIC LYMPHOMA/LEUKAEMIA
     Dosage: 36 MILLIGRAM DAILY;
     Route: 042
     Dates: start: 20180528, end: 20180528
  8. SEPTRIN PEDIATRICO 8 MG/40 MG/ML SUSPENSION ORAL , 1 FRASCO DE 100 ML [Concomitant]
     Active Substance: SULFAMETHOXAZOLE\TRIMETHOPRIM
     Indication: OPPORTUNISTIC INFECTION PROPHYLAXIS
     Route: 048
     Dates: start: 20180519

REACTIONS (2)
  - Pyrexia [Recovered/Resolved]
  - Pancytopenia [Recovered/Resolved]

NARRATIVE: CASE EVENT DATE: 20180609
